FAERS Safety Report 5829436-9 (Version None)
Quarter: 2008Q3

REPORT INFORMATION
  Report Type: 
  Country: None (occurrence: None)
  Receive Date: 20080731
  Receipt Date: 20080723
  Transmission Date: 20090109
  Serious: Yes (Hospitalization, Congenital Anomaly)
  Sender: FDA-Public Use
  Company Number: BE-ABBOTT-02P-013-0206244-00

PATIENT
  Sex: Female
  Weight: 2390 kg

DRUGS (2)
  1. DEPAKENE [Suspect]
     Indication: DRUG EXPOSURE DURING PREGNANCY
     Route: 064
  2. DEPAKENE [Suspect]

REACTIONS (12)
  - ATRIAL SEPTAL DEFECT [None]
  - ATROPHY [None]
  - CARDIAC MURMUR [None]
  - CONGENITAL EYE DISORDER [None]
  - CONGENITAL MUSCULOSKELETAL ANOMALY [None]
  - DRUG EXPOSURE DURING PREGNANCY [None]
  - HEARING IMPAIRED [None]
  - HYPOTONIA [None]
  - MICROGENIA [None]
  - PATENT DUCTUS ARTERIOSUS [None]
  - PSYCHOMOTOR RETARDATION [None]
  - SCOLIOSIS [None]
